FAERS Safety Report 15603335 (Version 3)
Quarter: 2019Q2

REPORT INFORMATION
  Report Type: Spontaneous
  Country: CA (occurrence: CA)
  Receive Date: 20181109
  Receipt Date: 20190617
  Transmission Date: 20190711
  Serious: Yes (Death, Life-Threatening, Hospitalization)
  Sender: FDA-Public Use
  Company Number: CA-ALLERGAN-1852375US

PATIENT
  Sex: Male
  Weight: 118 kg

DRUGS (5)
  1. ESCITALOPRAM OXALATE - BP [Suspect]
     Active Substance: ESCITALOPRAM OXALATE
     Indication: PAIN
     Dosage: 10 MG, QD
     Route: 048
     Dates: start: 20180301
  2. DICLOFENAC POTASSIUM. [Suspect]
     Active Substance: DICLOFENAC POTASSIUM
     Indication: PAIN
     Dosage: 2 DF, QD
     Route: 048
     Dates: start: 20180301
  3. IBUPROFEN. [Suspect]
     Active Substance: IBUPROFEN
     Indication: PAIN
     Dosage: 400 MG, UNK
     Route: 048
     Dates: start: 20180301
  4. ELIQUIS [Concomitant]
     Active Substance: APIXABAN
     Indication: PRODUCT USED FOR UNKNOWN INDICATION
     Dosage: 5 MG, Q12H
     Route: 065
  5. PANTOPRAZOLE [Concomitant]
     Active Substance: PANTOPRAZOLE
     Indication: PRODUCT USED FOR UNKNOWN INDICATION
     Dosage: 40 MG, QD
     Route: 065

REACTIONS (4)
  - Faeces discoloured [Fatal]
  - Lower gastrointestinal haemorrhage [Fatal]
  - Cardio-respiratory arrest [Fatal]
  - Product use in unapproved indication [Unknown]

NARRATIVE: CASE EVENT DATE: 20180426
